FAERS Safety Report 11525763 (Version 1)
Quarter: 2015Q3

REPORT INFORMATION
  Report Type: Spontaneous
  Country: US (occurrence: US)
  Receive Date: 20150918
  Receipt Date: 20150918
  Transmission Date: 20151125
  Serious: Yes (Other)
  Sender: FDA-Public Use
  Company Number: US-PFIZER INC-2015308566

PATIENT
  Sex: Female

DRUGS (3)
  1. CORTEF [Suspect]
     Active Substance: HYDROCORTISONE
     Indication: HYPERKERATOSIS
     Dosage: UNK
     Dates: start: 2012
  2. HYDROCORTISONE. [Suspect]
     Active Substance: HYDROCORTISONE
     Indication: HYPERKERATOSIS
     Dosage: 10 MG, UNK
  3. HYDROCORTISONE. [Suspect]
     Active Substance: HYDROCORTISONE
     Indication: ADRENAL INSUFFICIENCY

REACTIONS (5)
  - Drug ineffective [Unknown]
  - Malaise [Unknown]
  - Drug dependence [Unknown]
  - Drug intolerance [Unknown]
  - Product packaging issue [Unknown]
